FAERS Safety Report 12238341 (Version 1)
Quarter: 2016Q2

REPORT INFORMATION
  Report Type: Report from Study
  Country: US (occurrence: US)
  Receive Date: 20160405
  Receipt Date: 20160405
  Transmission Date: 20160815
  Serious: Yes (Death)
  Sender: FDA-Public Use
  Company Number: US-ABBVIE-16K-163-1597485-00

PATIENT
  Age: 58 Year
  Sex: Female

DRUGS (1)
  1. HUMIRA [Suspect]
     Active Substance: ADALIMUMAB
     Indication: CROHN^S DISEASE
     Route: 058
     Dates: start: 20100702, end: 20160318

REACTIONS (2)
  - Inappropriate schedule of drug administration [Recovered/Resolved]
  - Death [Fatal]

NARRATIVE: CASE EVENT DATE: 20160318
